FAERS Safety Report 9699919 (Version 2)
Quarter: 2014Q2

REPORT INFORMATION
  Report Type: Report from Study
  Country: GB (occurrence: GB)
  Receive Date: 20131121
  Receipt Date: 20140402
  Transmission Date: 20141212
  Serious: Yes (Hospitalization)
  Sender: FDA-Public Use
  Company Number: GB-ROCHE-1306775

PATIENT
  Age: 55 Year
  Sex: Male
  Weight: 123 kg

DRUGS (3)
  1. RITUXIMAB [Suspect]
     Indication: RHEUMATOID ARTHRITIS
     Route: 065
     Dates: start: 20110115
  2. FOLIC ACID [Concomitant]
  3. METHOTREXATE [Concomitant]

REACTIONS (3)
  - Peripheral swelling [Unknown]
  - Lymphadenopathy [Unknown]
  - Pain [Unknown]
